FAERS Safety Report 7734476-9 (Version None)
Quarter: 2011Q3

REPORT INFORMATION
  Report Type: 
  Country: None (occurrence: None)
  Receive Date: 20110907
  Receipt Date: 20110824
  Transmission Date: 20111222
  Serious: Yes (Hospitalization)
  Sender: FDA-Public Use
  Company Number: US-GLAXOSMITHKLINE-A0743840A

PATIENT
  Age: 62 Year
  Sex: Male
  Weight: 86.4 kg

DRUGS (8)
  1. ZOCOR [Concomitant]
  2. VIOXX [Concomitant]
  3. ALLEGRA [Concomitant]
  4. CLARINEX [Concomitant]
  5. LISINOPRIL [Concomitant]
  6. AVANDIA [Suspect]
     Indication: DIABETES MELLITUS
     Dosage: 8MG PER DAY
     Route: 048
     Dates: start: 20001227, end: 20070101
  7. LISINOPRIL [Concomitant]
  8. AMARYL [Concomitant]

REACTIONS (6)
  - MYOCARDIAL INFARCTION [None]
  - MITRAL VALVE DISEASE [None]
  - CEREBROVASCULAR ACCIDENT [None]
  - ATRIAL FIBRILLATION [None]
  - DEPRESSION [None]
  - CARDIAC FAILURE CONGESTIVE [None]
